FAERS Safety Report 10391521 (Version 2)
Quarter: 2014Q4

REPORT INFORMATION
  Report Type: Spontaneous
  Country: US (occurrence: US)
  Receive Date: 20140818
  Receipt Date: 20141030
  Transmission Date: 20150528
  Serious: No
  Sender: FDA-Public Use
  Company Number: US-009507513-1408USA008996

PATIENT
  Sex: Female
  Weight: 81.18 kg

DRUGS (1)
  1. NUVARING [Suspect]
     Active Substance: ETHINYL ESTRADIOL\ETONOGESTREL
     Dosage: UNK
     Route: 067

REACTIONS (7)
  - Embolism venous [Unknown]
  - Barrett^s oesophagus [Unknown]
  - Cerebral venous thrombosis [Unknown]
  - Knee arthroplasty [Unknown]
  - Catheterisation cardiac [Unknown]
  - Obesity [Unknown]
  - Migraine [Unknown]

NARRATIVE: CASE EVENT DATE: 20080812
